FAERS Safety Report 8829168 (Version 1)
Quarter: 2012Q4

REPORT INFORMATION
  Report Type: 
  Country: US (occurrence: US)
  Receive Date: 20121008
  Receipt Date: 20121008
  Transmission Date: 20130627
  Serious: Yes (Death)
  Sender: FDA-Public Use
  Company Number: CHPA2012US020979

PATIENT
  Sex: Female

DRUGS (1)
  1. MYOFLEX ANALGESIC CREME [Suspect]
     Indication: BONE NEOPLASM MALIGNANT
     Dosage: Unk, Unk
     Route: 061

REACTIONS (3)
  - Bone cancer [Fatal]
  - Therapeutic response unexpected [Unknown]
  - Off label use [Unknown]
